FAERS Safety Report 11912820 (Version 1)
Quarter: 2016Q1

REPORT INFORMATION
  Report Type: Spontaneous
  Country: US (occurrence: US)
  Receive Date: 20160113
  Receipt Date: 20160113
  Transmission Date: 20160526
  Serious: No
  Sender: FDA-Public Use
  Company Number: US-BAYER-2016-006345

PATIENT
  Age: 64 Year
  Sex: Female

DRUGS (1)
  1. MIRALAX [Suspect]
     Active Substance: POLYETHYLENE GLYCOL 3350
     Indication: COLONOSCOPY
     Dosage: 14 DF, QD (32 OUNCES ONE DAY AND 32 OUNCES THE NEXT DAY)
     Route: 048
     Dates: start: 2006

REACTIONS (1)
  - Product use issue [None]

NARRATIVE: CASE EVENT DATE: 2006
